FAERS Safety Report 9921709 (Version 1)
Quarter: 2014Q1

REPORT INFORMATION
  Report Type: Spontaneous
  Country: US (occurrence: None)
  Receive Date: 20140221
  Receipt Date: 20140221
  Transmission Date: 20141002
  Serious: Yes (Life-Threatening)
  Sender: FDA-Public Use
  Company Number: None

PATIENT
  Age: 17 Year
  Sex: Male
  Weight: 61.2 kg

DRUGS (1)
  1. ISOTRETINOIN [Suspect]
     Indication: SUICIDE ATTEMPT
     Dosage: QAM
     Route: 048

REACTIONS (3)
  - Suicide attempt [None]
  - Intentional drug misuse [None]
  - Exposure via ingestion [None]
